FAERS Safety Report 18123308 (Version 6)
Quarter: 2020Q4

REPORT INFORMATION
  Report Type: Spontaneous
  Country: IT (occurrence: IT)
  Receive Date: 20200807
  Receipt Date: 20201008
  Transmission Date: 20210113
  Serious: Yes (Life-Threatening, Hospitalization, Other)
  Sender: FDA-Public Use
  Company Number: NVSC2020IT218867

PATIENT
  Age: 12 Year
  Sex: Male
  Weight: 49 kg

DRUGS (8)
  1. VINCRISTINE [Concomitant]
     Active Substance: VINCRISTINE
     Indication: PRODUCT USED FOR UNKNOWN INDICATION
     Dosage: 1.5 MG/M2, EVERY 29 DAYS
     Route: 042
  2. IMATINIB MESILATE [Suspect]
     Active Substance: IMATINIB MESYLATE
     Dosage: 340 MG/M2, QD
     Route: 048
     Dates: start: 20180830, end: 20191013
  3. NYSTATIN. [Concomitant]
     Active Substance: NYSTATIN
     Indication: PRODUCT USED FOR UNKNOWN INDICATION
     Dosage: 1500000 IU, QD (500000 IU, TID)
     Route: 048
  4. IMATINIB MESILATE [Suspect]
     Active Substance: IMATINIB MESYLATE
     Indication: ACUTE LYMPHOCYTIC LEUKAEMIA
     Dosage: IMATINIB WAS STOPPED FOR 11 TO 12 DAYS
     Route: 065
  5. 6-MERCAPTOPURINE MONOHYDRATE [Concomitant]
     Active Substance: MERCAPTOPURINE
     Indication: PRODUCT USED FOR UNKNOWN INDICATION
     Dosage: 75 MG/M2, QD
     Route: 048
  6. METHOTREXATE. [Concomitant]
     Active Substance: METHOTREXATE
     Indication: PRODUCT USED FOR UNKNOWN INDICATION
     Dosage: 20 MG/M2, QW
     Route: 048
  7. NYSTATIN. [Concomitant]
     Active Substance: NYSTATIN
     Dosage: 500000 IU, TID
     Route: 065
  8. COTRIMOXAZOLE [Concomitant]
     Active Substance: SULFAMETHOXAZOLE\TRIMETHOPRIM
     Indication: PRODUCT USED FOR UNKNOWN INDICATION
     Dosage: 320 MG, QD (TWO TIMES A WEEK)
     Route: 048

REACTIONS (11)
  - Petechiae [Recovered/Resolved]
  - Thrombocytopenia [Recovered/Resolved]
  - Fibrin D dimer decreased [Recovered/Resolved]
  - Cholangitis [Recovered/Resolved]
  - Spontaneous haemorrhage [Recovered/Resolved]
  - Anaemia [Recovered/Resolved]
  - Blood fibrinogen decreased [Recovered/Resolved]
  - Puncture site haemorrhage [Recovered/Resolved]
  - Musculoskeletal pain [Recovered/Resolved]
  - Thrombotic microangiopathy [Recovered/Resolved]
  - Fibrin D dimer increased [Recovered/Resolved]
